FAERS Safety Report 25129479 (Version 3)
Quarter: 2025Q2

REPORT INFORMATION
  Report Type: Spontaneous
  Country: US (occurrence: US)
  Receive Date: 20250327
  Receipt Date: 20250402
  Transmission Date: 20250717
  Serious: No
  Sender: PFIZER
  Company Number: US-PFIZER INC-202500065033

PATIENT
  Age: 62 Year
  Sex: Female
  Weight: 97.8 kg

DRUGS (4)
  1. MEKTOVI [Suspect]
     Active Substance: BINIMETINIB
     Indication: Lung adenocarcinoma
     Dosage: 45 MG, 2X/DAY, (15MGXTAKE 3 TABS IN THE AM AND 3 TABS IN THE PM WITH OR WITHOUT FOOD)
     Route: 048
     Dates: start: 20250226
  2. MEKTOVI [Suspect]
     Active Substance: BINIMETINIB
     Indication: Anaemia
  3. MEKTOVI [Suspect]
     Active Substance: BINIMETINIB
     Indication: Non-small cell lung cancer
  4. BRAFTOVI [Suspect]
     Active Substance: ENCORAFENIB
     Indication: Lung adenocarcinoma
     Dosage: 450 MG, 1X/DAY (TAKE 450 MG (6 CAPSULES))
     Route: 048
     Dates: start: 20250226

REACTIONS (1)
  - Blood folate increased [Unknown]

NARRATIVE: CASE EVENT DATE: 20250227
